FAERS Safety Report 6649291-7 (Version None)
Quarter: 2010Q1

REPORT INFORMATION
  Report Type: 
  Country: None (occurrence: None)
  Receive Date: 20100324
  Receipt Date: 20100317
  Transmission Date: 20100710
  Serious: Yes (Hospitalization)
  Sender: FDA-Public Use
  Company Number: PHHO2010DE04256

PATIENT
  Sex: Female
  Weight: 71 kg

DRUGS (13)
  1. BLINDED ALISKIREN ALI+TAB+CF [Suspect]
     Dosage: NO TREATMENT
  2. BLINDED ENALAPRIL COMP-ENA+ [Suspect]
     Dosage: NO TREATMENT
  3. BLINDED NO TREATMENT RECEIVED NOMED [Suspect]
     Dosage: NO TREATMENT
  4. COMPARATOR ENALAPRIL [Suspect]
     Indication: CARDIAC FAILURE
     Dosage: UNK
     Route: 048
     Dates: start: 20100313, end: 20100315
  5. ACE INHIBITOR NOS [Suspect]
  6. FUROSEMID [Concomitant]
     Dosage: UNK
     Dates: start: 20071019
  7. DICLOFENAC [Concomitant]
     Dosage: UNK
     Dates: start: 20061206
  8. SALBUTAMOL [Concomitant]
     Dosage: UNK
     Dates: start: 20091015
  9. ASPIRIN [Concomitant]
     Dosage: UNK
     Dates: start: 20040319
  10. METOPROLOL [Concomitant]
     Dosage: UNK
     Dates: start: 20080227
  11. HYDROCHLOROTHIAZIDE [Concomitant]
     Dosage: UNK
     Dates: start: 20060717
  12. METAMIZOL [Concomitant]
     Dosage: UNK
     Dates: start: 20070822
  13. OMEPRAZOLE [Concomitant]
     Dosage: UNK
     Dates: start: 20090316

REACTIONS (4)
  - ANGIOEDEMA [None]
  - DISEASE PROGRESSION [None]
  - DRUG INEFFECTIVE [None]
  - STRIDOR [None]
